FAERS Safety Report 6607134-1 (Version None)
Quarter: 2010Q1

REPORT INFORMATION
  Report Type: 
  Country: None (occurrence: None)
  Receive Date: 20100212
  Receipt Date: 20091221
  Transmission Date: 20100710
  Serious: Yes (Other)
  Sender: FDA-Public Use
  Company Number: 1000010255

PATIENT
  Age: 55 Year
  Sex: Female
  Weight: 89.8122 kg

DRUGS (14)
  1. SAVELLA [Suspect]
     Indication: FIBROMYALGIA
     Dosage: SEE IMAGE
     Route: 048
     Dates: start: 20091105, end: 20091105
  2. SAVELLA [Suspect]
     Indication: FIBROMYALGIA
     Dosage: SEE IMAGE
     Route: 048
     Dates: start: 20091106, end: 20091107
  3. SAVELLA [Suspect]
     Indication: FIBROMYALGIA
     Dosage: SEE IMAGE
     Route: 048
     Dates: start: 20091108, end: 20091111
  4. SAVELLA [Suspect]
     Indication: FIBROMYALGIA
     Dosage: 100 MG (50 MG,2 IN 1 D),ORAL
     Route: 048
     Dates: start: 20091112, end: 20091118
  5. TRAZODONE HCL [Suspect]
     Indication: FIBROMYALGIA
     Dosage: 100 MG (100 MG,1 IN 1 D),ORAL
     Route: 048
     Dates: start: 20061215, end: 20091118
  6. TRAZODONE HCL [Suspect]
     Indication: INSOMNIA
     Dosage: 100 MG (100 MG,1 IN 1 D),ORAL
     Route: 048
     Dates: start: 20061215, end: 20091118
  7. VITAMIN D [Concomitant]
  8. HYDROCODONE [Concomitant]
  9. NEXIUM [Concomitant]
  10. CYCLOBENZAPRINE (10 MILLIGRAM, TABLETS) [Concomitant]
  11. FLONASE (NASAL DROPS (INCLUDING NASAL SPRAY) [Concomitant]
  12. PREMARIN [Concomitant]
  13. VIVACTIL (5 MILLIGRAM) [Concomitant]
  14. ZOLOFT [Concomitant]

REACTIONS (1)
  - SEROTONIN SYNDROME [None]
